FAERS Safety Report 26132339 (Version 2)
Quarter: 2025Q4

REPORT INFORMATION
  Report Type: Spontaneous
  Country: EU (occurrence: EU)
  Receive Date: 20251208
  Receipt Date: 20251216
  Transmission Date: 20260117
  Serious: Yes (Life-Threatening, Other)
  Sender: MYLAN
  Company Number: None

PATIENT
  Age: 6 Year
  Sex: Female

DRUGS (24)
  1. DEXAMETHASONE [Suspect]
     Active Substance: DEXAMETHASONE
     Indication: Prophylaxis
     Dosage: 3 MILLIGRAM
  2. DEXAMETHASONE [Suspect]
     Active Substance: DEXAMETHASONE
     Dosage: 3 MILLIGRAM
     Route: 042
  3. DEXAMETHASONE [Suspect]
     Active Substance: DEXAMETHASONE
     Dosage: 3 MILLIGRAM
     Route: 042
  4. DEXAMETHASONE [Suspect]
     Active Substance: DEXAMETHASONE
     Dosage: 3 MILLIGRAM
  5. SUFENTANIL [Suspect]
     Active Substance: SUFENTANIL
     Indication: Anaesthesia
     Dosage: 4 MICROGRAM
  6. SUFENTANIL [Suspect]
     Active Substance: SUFENTANIL
     Dosage: 4 MICROGRAM
     Route: 042
  7. SUFENTANIL [Suspect]
     Active Substance: SUFENTANIL
     Dosage: 4 MICROGRAM
     Route: 042
  8. SUFENTANIL [Suspect]
     Active Substance: SUFENTANIL
     Dosage: 4 MICROGRAM
  9. CEFAZOLIN [Suspect]
     Active Substance: CEFAZOLIN
     Indication: Prophylaxis
     Dosage: 1 GRAM
  10. CEFAZOLIN [Suspect]
     Active Substance: CEFAZOLIN
     Dosage: 1 GRAM
     Route: 042
  11. CEFAZOLIN [Suspect]
     Active Substance: CEFAZOLIN
     Dosage: 1 GRAM
     Route: 042
  12. CEFAZOLIN [Suspect]
     Active Substance: CEFAZOLIN
     Dosage: 1 GRAM
  13. DIPRIVAN [Suspect]
     Active Substance: PROPOFOL
     Indication: Anaesthesia
     Dosage: 120 MILLIGRAM
  14. DIPRIVAN [Suspect]
     Active Substance: PROPOFOL
     Dosage: 120 MILLIGRAM
     Route: 042
  15. DIPRIVAN [Suspect]
     Active Substance: PROPOFOL
     Dosage: 120 MILLIGRAM
     Route: 042
  16. DIPRIVAN [Suspect]
     Active Substance: PROPOFOL
     Dosage: 120 MILLIGRAM
  17. ROPIVACAINE HYDROCHLORIDE [Suspect]
     Active Substance: ROPIVACAINE HYDROCHLORIDE
     Indication: Anaesthesia
     Dosage: 5 MILLILITER
  18. ROPIVACAINE HYDROCHLORIDE [Suspect]
     Active Substance: ROPIVACAINE HYDROCHLORIDE
     Dosage: 5 MILLILITER
     Route: 042
  19. ROPIVACAINE HYDROCHLORIDE [Suspect]
     Active Substance: ROPIVACAINE HYDROCHLORIDE
     Dosage: 5 MILLILITER
     Route: 042
  20. ROPIVACAINE HYDROCHLORIDE [Suspect]
     Active Substance: ROPIVACAINE HYDROCHLORIDE
     Dosage: 5 MILLILITER
  21. TIAPROFENIC ACID [Suspect]
     Active Substance: TIAPROFENIC ACID
     Indication: Prophylaxis
     Dosage: 20 MILLIGRAM
  22. TIAPROFENIC ACID [Suspect]
     Active Substance: TIAPROFENIC ACID
     Dosage: 20 MILLIGRAM
     Route: 042
  23. TIAPROFENIC ACID [Suspect]
     Active Substance: TIAPROFENIC ACID
     Dosage: 20 MILLIGRAM
     Route: 042
  24. TIAPROFENIC ACID [Suspect]
     Active Substance: TIAPROFENIC ACID
     Dosage: 20 MILLIGRAM

REACTIONS (1)
  - Anaphylactic reaction [Recovered/Resolved]

NARRATIVE: CASE EVENT DATE: 20250519
